FAERS Safety Report 6927605-8 (Version None)
Quarter: 2010Q3

REPORT INFORMATION
  Report Type: 
  Country: None (occurrence: None)
  Receive Date: 20100817
  Receipt Date: 20100805
  Transmission Date: 20110219
  Serious: Yes (Congenital Anomaly)
  Sender: FDA-Public Use
  Company Number: DE-SANOFI-AVENTIS-2010SA043823

PATIENT
  Age: 0 Year

DRUGS (1)
  1. QUENSYL [Suspect]
     Route: 064

REACTIONS (4)
  - DRUG EXPOSURE DURING PREGNANCY [None]
  - OFF LABEL USE [None]
  - RETINAL HAEMORRHAGE [None]
  - RETINAL PIGMENT EPITHELIOPATHY [None]
